FAERS Safety Report 10237809 (Version 1)
Quarter: 2014Q2

REPORT INFORMATION
  Report Type: Spontaneous
  Country: CA (occurrence: CA)
  Receive Date: 20140616
  Receipt Date: 20140616
  Transmission Date: 20141212
  Serious: Yes (Hospitalization)
  Sender: FDA-Public Use
  Company Number: CA-ROCHE-1417841

PATIENT
  Age: 37 Year
  Sex: Female

DRUGS (6)
  1. XOLAIR [Suspect]
     Indication: ASTHMA
     Route: 058
     Dates: start: 20071217
  2. XOLAIR [Suspect]
     Route: 058
     Dates: start: 20121213
  3. XOLAIR [Suspect]
     Route: 058
     Dates: start: 20130307
  4. ATARAX [Concomitant]
  5. SYMBICORT [Concomitant]
  6. VENTOLIN [Concomitant]

REACTIONS (9)
  - Road traffic accident [Unknown]
  - Fall [Unknown]
  - Respiratory disorder [Unknown]
  - Tongue pruritus [Unknown]
  - Abdominal distension [Unknown]
  - Pharyngeal hypoaesthesia [Unknown]
  - Dyspnoea [Not Recovered/Not Resolved]
  - Dizziness [Recovered/Resolved]
  - Nausea [Recovered/Resolved]
